FAERS Safety Report 24781308 (Version 1)
Quarter: 2024Q4

REPORT INFORMATION
  Report Type: Spontaneous
  Country: US (occurrence: US)
  Receive Date: 20241227
  Receipt Date: 20241227
  Transmission Date: 20250115
  Serious: Yes (Hospitalization, Other)
  Sender: MSN LABORATORIES PRIVATE LIMITED
  Company Number: US-MSNLABS-2024MSNLIT02852

PATIENT

DRUGS (4)
  1. DOFETILIDE [Suspect]
     Active Substance: DOFETILIDE
     Indication: Atrial fibrillation
     Dosage: 500 MG TWICE DAILY
     Route: 065
  2. LISINOPRIL [Concomitant]
     Active Substance: LISINOPRIL
     Indication: Hypertension
     Route: 065
  3. RIVAROXABAN [Concomitant]
     Active Substance: RIVAROXABAN
     Dosage: 20 MG DAILY
     Route: 065
  4. DILTIAZEM [Concomitant]
     Active Substance: DILTIAZEM
     Indication: Atrial fibrillation
     Route: 042

REACTIONS (2)
  - Cardio-respiratory arrest [Recovered/Resolved]
  - Torsade de pointes [Recovered/Resolved]
